FAERS Safety Report 9840029 (Version 1)
Quarter: 2014Q1

REPORT INFORMATION
  Report Type: Spontaneous
  Country: US (occurrence: None)
  Receive Date: 20140117
  Receipt Date: 20140117
  Transmission Date: 20141002
  Serious: Yes (Death, Hospitalization)
  Sender: FDA-Public Use
  Company Number: None

PATIENT
  Age: 66 Year
  Sex: Female
  Weight: 91.6 kg

DRUGS (2)
  1. CYTARABINE [Suspect]
     Dates: end: 20131226
  2. DAUNORUBICIN [Suspect]
     Dates: end: 20131222

REACTIONS (6)
  - Escherichia bacteraemia [None]
  - Pleural effusion [None]
  - Lung infection [None]
  - Hypoxia [None]
  - Acute respiratory distress syndrome [None]
  - Respiratory failure [None]
